FAERS Safety Report 5629452-6 (Version None)
Quarter: 2008Q1

REPORT INFORMATION
  Report Type: 
  Country: None (occurrence: None)
  Receive Date: 20080218
  Receipt Date: 20080207
  Transmission Date: 20080703
  Serious: Yes (Hospitalization)
  Sender: FDA-Public Use
  Company Number: JP-NOVOPROD-272189

PATIENT
  Age: 64 Year
  Sex: Female
  Weight: 36 kg

DRUGS (1)
  1. NOVORAPID 30 MIX CHU FLEXPEN [Suspect]
     Indication: INSULIN-REQUIRING TYPE 2 DIABETES MELLITUS
     Dosage: 12 - 30  IU, QD
     Route: 058
     Dates: start: 20060614

REACTIONS (1)
  - CARDIAC FAILURE [None]
